FAERS Safety Report 7834133-4 (Version None)
Quarter: 2011Q4

REPORT INFORMATION
  Report Type: 
  Country: None (occurrence: None)
  Receive Date: 20111024
  Receipt Date: 20111011
  Transmission Date: 20120403
  Serious: Yes (Other)
  Sender: FDA-Public Use
  Company Number: PHHY2011FR65903

PATIENT
  Sex: Female

DRUGS (5)
  1. PREVISCAN [Concomitant]
  2. RASILEZ HCT [Suspect]
     Dosage: 300/12.5 MG
     Dates: start: 20110716
  3. RASILEZ HCT [Suspect]
     Indication: HYPERTENSION
     Dosage: 300/12.5 MG
     Dates: end: 20110501
  4. ZOCOR [Concomitant]
  5. ESCITALOPRAM [Concomitant]

REACTIONS (9)
  - ABDOMINAL PAIN UPPER [None]
  - ANORECTAL DISCOMFORT [None]
  - DIARRHOEA [None]
  - ANAL PRURITUS [None]
  - FISTULA [None]
  - INFECTION PARASITIC [None]
  - DIVERTICULITIS [None]
  - COLITIS [None]
  - HAEMORRHOIDS [None]
